FAERS Safety Report 12517543 (Version 1)
Quarter: 2016Q2

REPORT INFORMATION
  Report Type: Spontaneous
  Country: US (occurrence: US)
  Receive Date: 20160630
  Receipt Date: 20160630
  Transmission Date: 20160815
  Serious: No
  Sender: FDA-Public Use
  Company Number: US-ACTELION-A-US2016-138103

PATIENT
  Age: 80 Year
  Sex: Female

DRUGS (2)
  1. UPTRAVI [Suspect]
     Active Substance: SELEXIPAG
     Indication: PRODUCT USED FOR UNKNOWN INDICATION
     Dosage: 400 MCG, UNK
     Route: 048
     Dates: start: 20160616
  2. UPTRAVI [Suspect]
     Active Substance: SELEXIPAG
     Dosage: 200 MCG, UNK
     Route: 048

REACTIONS (3)
  - Pain in extremity [Unknown]
  - Headache [Recovering/Resolving]
  - Oedema peripheral [Unknown]
